FAERS Safety Report 6199592-4 (Version None)
Quarter: 2009Q2

REPORT INFORMATION
  Report Type: 
  Country: None (occurrence: None)
  Receive Date: 20090522
  Receipt Date: 20090515
  Transmission Date: 20091009
  Serious: Yes (Other)
  Sender: FDA-Public Use
  Company Number: B0575175A

PATIENT
  Sex: Male

DRUGS (3)
  1. SALBUTAMOL [Suspect]
     Indication: ASTHMA
     Route: 055
     Dates: start: 20090321, end: 20090301
  2. SERETIDE [Concomitant]
     Indication: ASTHMA
     Route: 055
  3. ATACAND [Concomitant]
     Indication: HYPERTENSION
     Route: 065

REACTIONS (1)
  - ASTHMATIC CRISIS [None]
